FAERS Safety Report 8632081 (Version 2)
Quarter: 2013Q1

REPORT INFORMATION
  Report Type: Spontaneous
  Country: BR (occurrence: BR)
  Receive Date: 20120625
  Receipt Date: 20130211
  Transmission Date: 20140127
  Serious: Yes (Other)
  Sender: FDA-Public Use
  Company Number: PHHY2012BR053358

PATIENT
  Age: 55 None
  Sex: Female

DRUGS (4)
  1. HIGROTON [Suspect]
     Dosage: UNK
  2. DIOVAN [Suspect]
     Indication: HYPERTENSION
     Dosage: 1 DF, DAILY IN THE MORNING (80 MG)
     Route: 048
     Dates: start: 201202, end: 201207
  3. DIOVAN [Suspect]
     Dosage: 2 DF, (1 IN THE MORNING AND 1 AT NIGHT)
  4. SYNTHROID [Concomitant]
     Indication: HYPOTHYROIDISM
     Dosage: 1 TABLET DAILY
     Route: 048

REACTIONS (9)
  - Retinal vascular occlusion [Recovered/Resolved]
  - Visual impairment [Recovering/Resolving]
  - Vision blurred [Recovering/Resolving]
  - Eye pain [Recovered/Resolved]
  - Panic disorder [Unknown]
  - Blood pressure inadequately controlled [Recovered/Resolved]
  - Blood pressure fluctuation [Recovered/Resolved]
  - Dizziness [Not Recovered/Not Resolved]
  - Headache [Recovered/Resolved]
